FAERS Safety Report 4351442-4 (Version None)
Quarter: 2004Q2

REPORT INFORMATION
  Report Type: 
  Country: None (occurrence: None)
  Receive Date: 20040503
  Receipt Date: 20040423
  Transmission Date: 20050107
  Serious: Yes (Death, Life-Threatening, Hospitalization)
  Sender: FDA-Public Use
  Company Number: PHRM2004FR01619

PATIENT
  Age: 1 Day
  Sex: Male
  Weight: 2 kg

DRUGS (2)
  1. TEGRETOL [Suspect]
     Route: 064
  2. LOXEN/CARDENE [Suspect]
     Route: 064

REACTIONS (18)
  - AKINESIA [None]
  - ANDROGEN DEFICIENCY [None]
  - ASCITES [None]
  - CEREBELLAR HYPOPLASIA [None]
  - CONGENITAL EYELID MALFORMATION [None]
  - DRUG EXPOSURE DURING PREGNANCY [None]
  - DYSPHAGIA [None]
  - FACIAL DYSMORPHISM [None]
  - HYPERTELORISM OF ORBIT [None]
  - HYPOTONIA NEONATAL [None]
  - LIVER DISORDER [None]
  - LUNG DISORDER [None]
  - MYOCARDITIS [None]
  - PERICARDIAL EFFUSION [None]
  - PLEURAL EFFUSION [None]
  - PULMONARY HYPOPLASIA [None]
  - SEPSIS [None]
  - SERRATIA INFECTION [None]
